FAERS Safety Report 16105444 (Version 2)
Quarter: 2024Q3

REPORT INFORMATION
  Report Type: Report from Study
  Country: FR (occurrence: FR)
  Receive Date: 20190322
  Receipt Date: 20240717
  Transmission Date: 20241016
  Serious: Yes (Hospitalization, Other)
  Sender: PFIZER
  Company Number: FR-TAKEDA-2017MPI010672

PATIENT
  Age: 40 Year
  Sex: Male
  Weight: 82 kg

DRUGS (7)
  1. BRENTUXIMAB VEDOTIN [Suspect]
     Active Substance: BRENTUXIMAB VEDOTIN
     Indication: Hodgkin^s disease
     Dosage: 98 MG, UNK
     Route: 042
     Dates: start: 20170324
  2. BRENTUXIMAB VEDOTIN [Suspect]
     Active Substance: BRENTUXIMAB VEDOTIN
     Dosage: 100 MG, UNK
     Route: 042
     Dates: start: 20170524, end: 20170531
  3. BRENTUXIMAB VEDOTIN [Suspect]
     Active Substance: BRENTUXIMAB VEDOTIN
     Dosage: 140 MG, UNK
     Route: 042
     Dates: start: 20171115
  4. BRENTUXIMAB VEDOTIN [Suspect]
     Active Substance: BRENTUXIMAB VEDOTIN
     Dosage: 150 MG, UNK
     Route: 042
     Dates: start: 20181018
  5. CARBOPLATIN [Suspect]
     Active Substance: CARBOPLATIN
     Indication: Hodgkin^s disease
     Dosage: 545 MG, UNK
     Route: 042
     Dates: start: 20170324, end: 20170525
  6. ETOPOSIDE [Suspect]
     Active Substance: ETOPOSIDE
     Indication: Hodgkin^s disease
     Dosage: 195 MG, UNK
     Route: 042
     Dates: start: 20170324, end: 20170526
  7. IFOSFAMIDE [Suspect]
     Active Substance: IFOSFAMIDE
     Indication: Hodgkin^s disease
     Dosage: 9800 MG, UNK
     Route: 042
     Dates: start: 20170324, end: 20170525

REACTIONS (4)
  - Septic shock [Recovered/Resolved]
  - Arthralgia [Unknown]
  - Muscle spasms [Unknown]
  - Off label use [Unknown]

NARRATIVE: CASE EVENT DATE: 20170324
